FAERS Safety Report 7068342-1 (Version None)
Quarter: 2010Q4

REPORT INFORMATION
  Report Type: 
  Country: None (occurrence: None)
  Receive Date: 20101028
  Receipt Date: 20101021
  Transmission Date: 20110411
  Serious: Yes (Hospitalization)
  Sender: FDA-Public Use
  Company Number: A0888061A

PATIENT
  Age: 53 Year
  Sex: Female

DRUGS (9)
  1. ADVAIR DISKUS 100/50 [Suspect]
     Indication: CHRONIC OBSTRUCTIVE PULMONARY DISEASE
     Dosage: 1PUFF TWICE PER DAY
     Route: 055
     Dates: start: 20040101
  2. PREDNISONE [Concomitant]
  3. NORVASC [Concomitant]
  4. DIPHENHYDRAMINE HCL [Concomitant]
  5. LORAZEPAM [Concomitant]
  6. ALBUTEROL [Concomitant]
  7. PROVENTIL [Concomitant]
  8. SINGULAIR [Concomitant]
  9. SPIRIVA [Concomitant]

REACTIONS (7)
  - ASTHMA [None]
  - BRONCHITIS [None]
  - CHRONIC OBSTRUCTIVE PULMONARY DISEASE [None]
  - COUGH [None]
  - DRUG INEFFECTIVE [None]
  - NASOPHARYNGITIS [None]
  - PNEUMONIA [None]
